FAERS Safety Report 10235084 (Version 1)
Quarter: 2014Q2

REPORT INFORMATION
  Report Type: Spontaneous
  Country: US (occurrence: US)
  Receive Date: 20140613
  Receipt Date: 20140613
  Transmission Date: 20141212
  Serious: Yes (Other)
  Sender: FDA-Public Use
  Company Number: US-BAYER-2014-083893

PATIENT
  Age: 32 Year
  Sex: Female

DRUGS (5)
  1. ACETYLSALICYLIC ACID({=100 MG) [Suspect]
     Dosage: UNK
  2. PROGESTERONE (SOLUTION) [Suspect]
  3. PROCARDIA [Concomitant]
  4. LOVENOX [Concomitant]
  5. ARMOUR THYROID [Concomitant]

REACTIONS (2)
  - Oligohydramnios [None]
  - Exposure during pregnancy [None]
